FAERS Safety Report 17174321 (Version 1)
Quarter: 2019Q4

REPORT INFORMATION
  Report Type: Report from Study
  Country: None (occurrence: US)
  Receive Date: 20191219
  Receipt Date: 20191219
  Transmission Date: 20200122
  Serious: Yes (Other)
  Sender: FDA-Public Use
  Company Number: US-ABBVIE-19K-163-3148140-00

PATIENT
  Sex: Female

DRUGS (7)
  1. IMBRUVICA [Suspect]
     Active Substance: IBRUTINIB
     Indication: CHRONIC LYMPHOCYTIC LEUKAEMIA
     Dosage: 420 MG, QD
     Route: 048
     Dates: start: 20190520
  2. IMBRUVICA [Suspect]
     Active Substance: IBRUTINIB
     Dosage: 420 MG, QD
     Route: 048
     Dates: start: 20190625
  3. IMBRUVICA [Suspect]
     Active Substance: IBRUTINIB
     Dosage: CUTTING THE PILL IN HALF (210 MG)
     Route: 048
  4. IMBRUVICA [Suspect]
     Active Substance: IBRUTINIB
     Dosage: 420 MG, QD
     Route: 048
     Dates: start: 20190529
  5. IMBRUVICA [Suspect]
     Active Substance: IBRUTINIB
     Indication: ACUTE LYMPHOCYTIC LEUKAEMIA
     Dosage: 420 MG, QD
     Route: 048
     Dates: start: 20190521
  6. IMBRUVICA [Suspect]
     Active Substance: IBRUTINIB
     Dosage: 70 MG, TID
     Route: 048
  7. IMBRUVICA [Suspect]
     Active Substance: IBRUTINIB
     Dosage: 210 MG, QD
     Route: 048

REACTIONS (24)
  - Fatigue [Unknown]
  - Diarrhoea [Unknown]
  - Vertigo [Recovered/Resolved]
  - Arthralgia [Unknown]
  - Anxiety [Unknown]
  - Palpitations [Recovered/Resolved]
  - Nausea [Unknown]
  - Back pain [Unknown]
  - Wrong technique in product usage process [Unknown]
  - Hypotension [Not Recovered/Not Resolved]
  - Headache [Unknown]
  - Cardiac failure congestive [Unknown]
  - Bone pain [Recovered/Resolved]
  - Rash macular [Unknown]
  - Myalgia [Unknown]
  - Myocardial infarction [Unknown]
  - Hot flush [Recovering/Resolving]
  - Weight increased [Unknown]
  - Asthenia [Not Recovered/Not Resolved]
  - Urinary tract infection [Unknown]
  - Malaise [Unknown]
  - Hypohidrosis [Unknown]
  - Muscle spasms [Not Recovered/Not Resolved]
  - Influenza like illness [Unknown]
